FAERS Safety Report 13100801 (Version 1)
Quarter: 2017Q1

REPORT INFORMATION
  Report Type: Spontaneous
  Country: US (occurrence: US)
  Receive Date: 20170110
  Receipt Date: 20170110
  Transmission Date: 20170428
  Serious: Yes (Other)
  Sender: FDA-Public Use
  Company Number: US-BRISTOL-MYERS SQUIBB COMPANY-BMS-2017-000741

PATIENT
  Sex: Female

DRUGS (3)
  1. OPDIVO [Suspect]
     Active Substance: NIVOLUMAB
     Indication: LUNG NEOPLASM MALIGNANT
     Dosage: 3 MG/KG, Q2WK
     Route: 042
     Dates: start: 20151104, end: 20160127
  2. IRON [Concomitant]
     Active Substance: IRON
     Indication: PRODUCT USED FOR UNKNOWN INDICATION
     Dosage: 1 MG, UNK
     Route: 048
     Dates: start: 20150720, end: 20161122
  3. HEMOCYTE PLUS [Concomitant]
     Indication: PRODUCT USED FOR UNKNOWN INDICATION
     Dosage: 106 MG, QD
     Route: 048
     Dates: start: 20150720, end: 20161222

REACTIONS (1)
  - Malignant neoplasm progression [Unknown]
